FAERS Safety Report 17567577 (Version 1)
Quarter: 2020Q1

REPORT INFORMATION
  Report Type: Spontaneous
  Country: CA (occurrence: CA)
  Receive Date: 20200320
  Receipt Date: 20200320
  Transmission Date: 20200409
  Serious: Yes (Death, Hospitalization, Other)
  Sender: FDA-Public Use
  Company Number: NVSC2020CA078053

PATIENT
  Age: 61 Year
  Sex: Female

DRUGS (2)
  1. SANDOSTATIN LAR DEPOT [Suspect]
     Active Substance: OCTREOTIDE ACETATE
     Indication: CARCINOID TUMOUR
     Dosage: 20 MG, QMO
     Route: 030
  2. METOPROLOL. [Suspect]
     Active Substance: METOPROLOL
     Indication: PRODUCT USED FOR UNKNOWN INDICATION
     Dosage: 300 MG, Q24H
     Route: 048

REACTIONS (20)
  - Bronchospasm [Fatal]
  - Injection site abscess [Fatal]
  - Injection site mass [Fatal]
  - Dizziness [Fatal]
  - Tachycardia [Fatal]
  - Wound [Fatal]
  - Wrong technique in product usage process [Fatal]
  - Blood pressure increased [Fatal]
  - Fall [Fatal]
  - Limb injury [Fatal]
  - Injection site pain [Fatal]
  - Pruritus [Fatal]
  - Joint injury [Fatal]
  - General physical health deterioration [Fatal]
  - Blood pressure decreased [Fatal]
  - Coma [Fatal]
  - Upper limb fracture [Fatal]
  - Death [Fatal]
  - Body temperature decreased [Fatal]
  - Pain [Fatal]
